FAERS Safety Report 15029660 (Version 1)
Quarter: 2018Q2

REPORT INFORMATION
  Report Type: Not Available
  Country: CN (occurrence: CN)
  Receive Date: 20180619
  Receipt Date: 20180619
  Transmission Date: 20180711
  Serious: Yes (Hospitalization)
  Sender: FDA-Public Use
  Company Number: CN-ANIPHARMA-2018-CN-000091

PATIENT
  Age: 52 Year
  Sex: Female
  Weight: 60 kg

DRUGS (3)
  1. ARIMIDEX [Suspect]
     Active Substance: ANASTROZOLE
     Indication: BREAST CANCER
     Dosage: 1MG DAILY
     Route: 065
     Dates: start: 20170710, end: 20180418
  2. PLACEBO [Suspect]
     Active Substance: UNSPECIFIED INGREDIENT
     Dosage: EVERY 12 HOURS
     Route: 065
     Dates: start: 20170710, end: 20180418
  3. BLINDED (GEFITNIB) [Suspect]
     Active Substance: GEFITINIB
     Dosage: EVERY 12 HOURS
     Dates: start: 20170710, end: 20180418

REACTIONS (5)
  - Arrhythmia [Recovered/Resolved]
  - Headache [None]
  - Hypertriglyceridaemia [None]
  - Cerebral ischaemia [Recovering/Resolving]
  - Dizziness [None]

NARRATIVE: CASE EVENT DATE: 20180314
